FAERS Safety Report 7648644-8 (Version None)
Quarter: 2011Q3

REPORT INFORMATION
  Report Type: 
  Country: None (occurrence: None)
  Receive Date: 20110801
  Receipt Date: 20110719
  Transmission Date: 20111222
  Serious: Yes (Other)
  Sender: FDA-Public Use
  Company Number: PHHY2011GR65617

PATIENT
  Age: 76 Year
  Sex: Female

DRUGS (4)
  1. ZOLEDRONIC ACID [Suspect]
     Dosage: 5 MG, UNK
     Route: 042
     Dates: start: 20090601
  2. ZOMETA [Suspect]
  3. TERIPARATIDE [Concomitant]
     Dosage: 20 MG, UNK
     Route: 058
     Dates: start: 20070101, end: 20090601
  4. ZOLEDRONIC ACID [Suspect]
     Indication: OSTEOPOROSIS
     Dosage: 4 MG, ANUALLY
     Route: 042
     Dates: start: 20010101, end: 20060101

REACTIONS (8)
  - PSEUDARTHROSIS [None]
  - HYPERPARATHYROIDISM [None]
  - ULNA FRACTURE [None]
  - IMPAIRED HEALING [None]
  - FEMUR FRACTURE [None]
  - VITAMIN D DEFICIENCY [None]
  - STRESS FRACTURE [None]
  - PAIN IN EXTREMITY [None]
